FAERS Safety Report 6846221-X (Version None)
Quarter: 2010Q3

REPORT INFORMATION
  Report Type: 
  Country: None (occurrence: None)
  Receive Date: 20100715
  Receipt Date: 20070913
  Transmission Date: 20110219
  Serious: No
  Sender: FDA-Public Use
  Company Number: US-PFIZER INC-2007076942

PATIENT
  Sex: Female
  Weight: 82.7 kg

DRUGS (11)
  1. CHANTIX [Suspect]
     Indication: SMOKING CESSATION THERAPY
     Dates: start: 20070826, end: 20070913
  2. NICOTINE [Suspect]
     Indication: SMOKING CESSATION THERAPY
     Dates: start: 20070908, end: 20070910
  3. INDERAL [Concomitant]
  4. PLAVIX [Concomitant]
  5. PROZAC [Concomitant]
  6. HYDROCHLOROTHIAZIDE [Concomitant]
  7. MONTELUKAST SODIUM [Concomitant]
  8. ACIPHEX [Concomitant]
  9. VYTORIN [Concomitant]
  10. VISTARIL [Concomitant]
  11. LISINOPRIL [Concomitant]

REACTIONS (4)
  - DIARRHOEA [None]
  - FLATULENCE [None]
  - NAUSEA [None]
  - VOMITING [None]
